FAERS Safety Report 8958395 (Version 1)
Quarter: 2012Q4

REPORT INFORMATION
  Report Type: 
  Country: FR (occurrence: FR)
  Receive Date: 20121210
  Receipt Date: 20121210
  Transmission Date: 20130627
  Serious: Yes (Death)
  Sender: FDA-Public Use
  Company Number: FR-GLAXOSMITHKLINE-B0849904A

PATIENT
  Age: 81 Year
  Sex: Male
  Weight: 70 kg

DRUGS (6)
  1. ARIXTRA [Suspect]
     Indication: PULMONARY EMBOLISM
     Dosage: 7.5MG Per day
     Route: 058
     Dates: start: 20120901, end: 20121111
  2. EBIXA [Concomitant]
     Indication: DEMENTIA ALZHEIMER^S TYPE
     Dosage: 20MG Per day
  3. AMLOR [Concomitant]
     Indication: HYPERTENSION
     Dosage: 5MG Per day
  4. AVODART [Concomitant]
     Indication: BENIGN PROSTATIC HYPERPLASIA
     Dosage: .5UNIT Per day
  5. TAMSULOSINE [Concomitant]
     Indication: BENIGN PROSTATIC HYPERPLASIA
     Dosage: .4UNIT Per day
  6. DEPAKINE CHRONO [Concomitant]
     Indication: EPILEPSY
     Dosage: .5UNIT Per day

REACTIONS (10)
  - Shock haemorrhagic [Fatal]
  - Muscle haemorrhage [Fatal]
  - Presyncope [Unknown]
  - Convulsion [Recovered/Resolved]
  - Red blood cell count decreased [Unknown]
  - Vomiting [Unknown]
  - Livedo reticularis [Unknown]
  - Pallor [Unknown]
  - Respiratory disorder [Unknown]
  - Incorrect drug administration duration [Unknown]
